FAERS Safety Report 21346122 (Version 1)
Quarter: 2022Q3

REPORT INFORMATION
  Report Type: Spontaneous
  Country: IT (occurrence: IT)
  Receive Date: 20220917
  Receipt Date: 20220917
  Transmission Date: 20221026
  Serious: Yes (Hospitalization, Other)
  Sender: FDA-Public Use
  Company Number: IT-MINISAL02-883839

PATIENT
  Age: 39 Year
  Sex: Male

DRUGS (8)
  1. ZOLPIDEM [Suspect]
     Active Substance: ZOLPIDEM TARTRATE
     Indication: Borderline personality disorder
     Dosage: 10 MILLIGRAM (4 CPR DA 10MG)
     Route: 048
     Dates: start: 20220902
  2. CHLORPROMAZINE [Suspect]
     Active Substance: CHLORPROMAZINE
     Indication: Borderline personality disorder
     Dosage: 100 MILLIGRAM (4 CPR DA 100MG)
     Route: 048
     Dates: start: 20220902
  3. RIVOTRIL [Suspect]
     Active Substance: CLONAZEPAM
     Indication: Borderline personality disorder
     Dosage: 2 MILLIGRAM (8 CPR DA 2 MG)
     Route: 048
     Dates: start: 20220902
  4. ABILIFY [Concomitant]
     Active Substance: ARIPIPRAZOLE
     Indication: Product used for unknown indication
     Dosage: 15 MILLIGRAM (15MG/DIE)
     Route: 048
  5. VALPROATE SODIUM [Concomitant]
     Active Substance: VALPROATE SODIUM
     Indication: Product used for unknown indication
     Dosage: 500 MILLIGRAM, TWO TIMES A DAY
     Route: 048
  6. LITHIUM SULFATE [Concomitant]
     Active Substance: LITHIUM SULFATE
     Indication: Product used for unknown indication
     Dosage: 83 MILLIGRAM (500MG/2 VOLTE AL GIORNO)
     Route: 048
  7. QUETIAPINE [Concomitant]
     Active Substance: QUETIAPINE
     Indication: Product used for unknown indication
     Dosage: 100 MILLIGRAM (100MG/DIE)
     Route: 048
  8. METHADONE [Concomitant]
     Active Substance: METHADONE HYDROCHLORIDE
     Indication: Product used for unknown indication
     Dosage: 30 MILLIGRAM (30MG/DIE)
     Route: 048

REACTIONS (2)
  - Drug abuse [Unknown]
  - Wound [Recovered/Resolved]

NARRATIVE: CASE EVENT DATE: 20220902
